FAERS Safety Report 9700158 (Version 1)
Quarter: 2013Q4

REPORT INFORMATION
  Report Type: Spontaneous
  Country: US (occurrence: US)
  Receive Date: 20131121
  Receipt Date: 20131121
  Transmission Date: 20140711
  Serious: Yes (Hospitalization)
  Sender: FDA-Public Use
  Company Number: US-SHIRE-ALL1-2013-07906

PATIENT
  Age: 3 Year
  Sex: Female

DRUGS (1)
  1. INTUNIV [Suspect]
     Indication: ACCIDENTAL EXPOSURE TO PRODUCT BY CHILD
     Dosage: UNK, ONE DOSE
     Route: 048
     Dates: start: 20130407, end: 20130407

REACTIONS (2)
  - Abnormal behaviour [Unknown]
  - Accidental exposure to product by child [Recovered/Resolved]
